FAERS Safety Report 20833045 (Version 1)
Quarter: 2022Q2

REPORT INFORMATION
  Report Type: Spontaneous
  Country: GB (occurrence: GB)
  Receive Date: 20220516
  Receipt Date: 20220516
  Transmission Date: 20220721
  Serious: Yes (Other)
  Sender: FDA-Public Use
  Company Number: GB-MHRA-MED-202204202148177200-ZH4M8

PATIENT

DRUGS (5)
  1. ORLISTAT [Suspect]
     Active Substance: ORLISTAT
     Indication: Non-alcoholic steatohepatitis
     Dosage: 120 MG
     Route: 065
     Dates: start: 20220406
  2. MEFENAMIC ACID [Concomitant]
     Active Substance: MEFENAMIC ACID
     Indication: Dysmenorrhoea
     Dosage: UNK
     Dates: start: 20090510
  3. BECLOMETHASONE DIPROPIONATE [Concomitant]
     Active Substance: BECLOMETHASONE DIPROPIONATE
     Indication: Dyspnoea
     Dosage: UNK
     Dates: start: 20211222
  4. VENLAFAXINE HYDROCHLORIDE [Concomitant]
     Active Substance: VENLAFAXINE HYDROCHLORIDE
     Indication: Depression
     Dosage: UNK
     Dates: start: 20100910
  5. ALBUTEROL [Concomitant]
     Active Substance: ALBUTEROL
     Indication: Dyspnoea
     Dosage: UNK
     Dates: start: 20211209

REACTIONS (9)
  - Faeces discoloured [Not Recovered/Not Resolved]
  - Vaginal haemorrhage [Unknown]
  - Rectal discharge [Recovering/Resolving]
  - Increased appetite [Not Recovered/Not Resolved]
  - Lacrimation increased [Not Recovered/Not Resolved]
  - Energy increased [Recovering/Resolving]
  - Insomnia [Not Recovered/Not Resolved]
  - Restlessness [Not Recovered/Not Resolved]
  - Dry skin [Not Recovered/Not Resolved]

NARRATIVE: CASE EVENT DATE: 20220407
